FAERS Safety Report 9419016 (Version 2)
Quarter: 2013Q3

REPORT INFORMATION
  Report Type: Report from Study
  Country: US (occurrence: US)
  Receive Date: 20130725
  Receipt Date: 20130919
  Transmission Date: 20140515
  Serious: Yes (Hospitalization, Other)
  Sender: FDA-Public Use
  Company Number: PHEH2013US015555

PATIENT
  Age: 43 Year
  Sex: Female
  Weight: 75 kg

DRUGS (1)
  1. GILENYA [Suspect]
     Indication: MULTIPLE SCLEROSIS
     Dosage: 0.5 MG, QD
     Route: 048
     Dates: start: 20130211

REACTIONS (13)
  - Status epilepticus [Recovered/Resolved]
  - Feeling abnormal [Unknown]
  - Speech disorder [Unknown]
  - Musculoskeletal stiffness [Unknown]
  - Lethargy [Unknown]
  - Tremor [Unknown]
  - Cyanosis [Unknown]
  - Foaming at mouth [Unknown]
  - Loss of consciousness [Unknown]
  - Convulsion [Recovered/Resolved]
  - Confusional state [Unknown]
  - Disorientation [Unknown]
  - Memory impairment [Not Recovered/Not Resolved]
